FAERS Safety Report 10254328 (Version 2)
Quarter: 2015Q2

REPORT INFORMATION
  Report Type: Report from Study
  Country: TR (occurrence: TR)
  Receive Date: 20140624
  Receipt Date: 20150409
  Transmission Date: 20150821
  Serious: Yes (Hospitalization, Other)
  Sender: FDA-Public Use
  Company Number: TR-NOVOPROD-413612

PATIENT
  Sex: Male
  Weight: 2.7 kg

DRUGS (3)
  1. NOVORAPID [Suspect]
     Active Substance: INSULIN ASPART
     Indication: GESTATIONAL DIABETES
     Dosage: 42 U, QD
     Route: 064
     Dates: start: 20131021, end: 20140307
  2. NOVORAPID [Suspect]
     Active Substance: INSULIN ASPART
     Dosage: 42 U, QD
     Route: 063
  3. HUMULIN N [Concomitant]
     Active Substance: INSULIN HUMAN
     Indication: GESTATIONAL DIABETES
     Dosage: 24 U, QD
     Route: 064
     Dates: start: 20131021

REACTIONS (3)
  - Premature baby [Unknown]
  - Respiratory disorder neonatal [Recovered/Resolved]
  - Foetal exposure during pregnancy [Recovered/Resolved]

NARRATIVE: CASE EVENT DATE: 20131021
